FAERS Safety Report 7672531-2 (Version None)
Quarter: 2011Q3

REPORT INFORMATION
  Report Type: 
  Country: None (occurrence: None)
  Receive Date: 20110809
  Receipt Date: 20110802
  Transmission Date: 20111222
  Serious: Yes (Other)
  Sender: FDA-Public Use
  Company Number: AU-PFIZER INC-2011175181

PATIENT
  Age: 22 Year
  Sex: Female

DRUGS (2)
  1. CODRAL DAY + NIGHT [Concomitant]
     Dosage: UNK
  2. LEVONORGESTREL AND ETHINYL ESTRADIOL [Suspect]
     Dosage: UNK

REACTIONS (2)
  - INFLUENZA [None]
  - RESPIRATORY TRACT INFECTION [None]
